FAERS Safety Report 13491662 (Version 1)
Quarter: 2017Q2

REPORT INFORMATION
  Report Type: Spontaneous
  Country: FR (occurrence: FR)
  Receive Date: 20170427
  Receipt Date: 20170427
  Transmission Date: 20170830
  Serious: Yes (Other)
  Sender: FDA-Public Use
  Company Number: FR-LEO PHARMA-301495

PATIENT
  Age: 75 Year
  Sex: Female

DRUGS (1)
  1. PICATO [Suspect]
     Active Substance: INGENOL MEBUTATE
     Indication: SQUAMOUS CELL CARCINOMA
     Dosage: 1 TUBE DAILY
     Route: 061
     Dates: start: 20170324, end: 20170326

REACTIONS (4)
  - Product use in unapproved indication [Unknown]
  - Erythema [Recovered/Resolved]
  - Face oedema [Recovered/Resolved]
  - Keratitis [Not Recovered/Not Resolved]

NARRATIVE: CASE EVENT DATE: 20170327
